FAERS Safety Report 6828844-7 (Version None)
Quarter: 2010Q3

REPORT INFORMATION
  Report Type: 
  Country: None (occurrence: None)
  Receive Date: 20100709
  Receipt Date: 20070221
  Transmission Date: 20110219
  Serious: No
  Sender: FDA-Public Use
  Company Number: US-PFIZER INC-2007014931

PATIENT
  Sex: Male
  Weight: 65.77 kg

DRUGS (4)
  1. CHANTIX [Suspect]
     Indication: SMOKING CESSATION THERAPY
  2. TAMSULOSIN HCL [Concomitant]
  3. OTHER HYPNOTICS AND SEDATIVES [Concomitant]
  4. ALL OTHER THERAPEUTIC PRODUCTS [Concomitant]

REACTIONS (2)
  - DRUG INEFFECTIVE [None]
  - MALAISE [None]
